FAERS Safety Report 15367210 (Version 2)
Quarter: 2018Q3

REPORT INFORMATION
  Report Type: Spontaneous
  Country: PL (occurrence: PL)
  Receive Date: 20180910
  Receipt Date: 20180921
  Transmission Date: 20181010
  Serious: Yes (Death, Hospitalization, Other)
  Sender: FDA-Public Use
  Company Number: PHHY2018PL078618

PATIENT
  Age: 29 Year
  Sex: Male

DRUGS (4)
  1. IMATINIB [Suspect]
     Active Substance: IMATINIB
     Indication: CHRONIC EOSINOPHILIC LEUKAEMIA
  2. IMATINIB [Suspect]
     Active Substance: IMATINIB
     Indication: HYPEREOSINOPHILIC SYNDROME
  3. IMATINIB [Suspect]
     Active Substance: IMATINIB
     Indication: SYSTEMIC SCLERODERMA
     Dosage: UNK
     Route: 065
  4. IMATINIB [Suspect]
     Active Substance: IMATINIB
     Indication: EOSINOPHILIC LEUKAEMIA

REACTIONS (9)
  - Pleural effusion [Recovering/Resolving]
  - Cardiac failure congestive [Fatal]
  - Condition aggravated [Fatal]
  - Oedema peripheral [Recovering/Resolving]
  - Dyspnoea [Recovering/Resolving]
  - Disease progression [Fatal]
  - Ascites [Recovering/Resolving]
  - Cardiotoxicity [Fatal]
  - Cardiac failure [Fatal]
